FAERS Safety Report 15591957 (Version 1)
Quarter: 2018Q4

REPORT INFORMATION
  Report Type: Spontaneous
  Country: US (occurrence: US)
  Receive Date: 20181106
  Receipt Date: 20181106
  Transmission Date: 20190205
  Serious: Yes (Hospitalization, Other)
  Sender: FDA-Public Use
  Company Number: None

PATIENT
  Sex: Female

DRUGS (3)
  1. BIO-IDENTICAL HORMONE REPLACEMENT THERAPY [Concomitant]
  2. TURMERIC [Concomitant]
     Active Substance: HERBALS\TURMERIC
  3. BOTOX COSMETIC [Suspect]
     Active Substance: ONABOTULINUMTOXINA
     Indication: SKIN COSMETIC PROCEDURE
     Route: 058

REACTIONS (9)
  - Facial paralysis [None]
  - Dyspnoea [None]
  - Asthenia [None]
  - Anaphylactic reaction [None]
  - Diplopia [None]
  - Myasthenia gravis [None]
  - Eyelid ptosis [None]
  - Facial paresis [None]
  - Vision blurred [None]

NARRATIVE: CASE EVENT DATE: 20181016
